FAERS Safety Report 25137588 (Version 1)
Quarter: 2025Q1

REPORT INFORMATION
  Report Type: Spontaneous
  Country: ES (occurrence: ES)
  Receive Date: 20250329
  Receipt Date: 20250329
  Transmission Date: 20250409
  Serious: Yes (Congenital Anomaly)
  Sender: TEVA
  Company Number: None

PATIENT
  Age: 5 Year
  Sex: Female

DRUGS (4)
  1. LAMOTRIGINE [Suspect]
     Active Substance: LAMOTRIGINE
     Indication: Epilepsy
     Dosage: LAMOTRIGINA (2579A)
     Route: 048
     Dates: start: 2019
  2. LEVETIRACETAM [Suspect]
     Active Substance: LEVETIRACETAM
     Indication: Epilepsy
     Dosage: LEVETIRACETAM (1167A)
     Route: 048
     Dates: start: 2019
  3. LEVOTHYROXINE SODIUM [Concomitant]
     Active Substance: LEVOTHYROXINE SODIUM
     Indication: Hypothyroidism
     Dosage: LEVOTHYROXINE SODIUM (1842SO)
     Route: 048
     Dates: start: 2019
  4. CLOBAZAM [Suspect]
     Active Substance: CLOBAZAM
     Indication: Epilepsy
     Dosage: CLOBAZAM (836A)
     Route: 048
     Dates: start: 2019

REACTIONS (2)
  - Anorectal malformation [Recovered/Resolved with Sequelae]
  - Maternal exposure during pregnancy [Recovered/Resolved with Sequelae]

NARRATIVE: CASE EVENT DATE: 20180101
